FAERS Safety Report 5221140-3 (Version None)
Quarter: 2007Q1

REPORT INFORMATION
  Report Type: 
  Country: None (occurrence: None)
  Receive Date: 20070126
  Receipt Date: 20070112
  Transmission Date: 20070707
  Serious: Yes (Life-Threatening, Hospitalization)
  Sender: FDA-Public Use
  Company Number: US-JNJFOC-20070103416

PATIENT
  Age: 52 Year
  Sex: Male

DRUGS (3)
  1. FENTANYL [Suspect]
     Indication: DRUG USE FOR UNKNOWN INDICATION
  2. ANTIDEPRESSANT [Suspect]
     Indication: DRUG USE FOR UNKNOWN INDICATION
  3. ACETAMINOPHEN AND HYDROCODONE BITARTRATE [Suspect]
     Indication: RADICULAR PAIN

REACTIONS (5)
  - ADVERSE EVENT [None]
  - HEPATIC FAILURE [None]
  - INTENTIONAL DRUG MISUSE [None]
  - RENAL FAILURE [None]
  - SEROTONIN SYNDROME [None]
